FAERS Safety Report 17414020 (Version 2)
Quarter: 2025Q3

REPORT INFORMATION
  Report Type: Report from Study
  Country: US (occurrence: US)
  Receive Date: 20200213
  Receipt Date: 20250705
  Transmission Date: 20251021
  Serious: Yes (Death, Hospitalization)
  Sender: AUROBINDO
  Company Number: US-MYLANLABS-2020M1016618

PATIENT

DRUGS (4)
  1. FLUOROURACIL [Suspect]
     Active Substance: FLUOROURACIL
     Indication: Oesophageal adenocarcinoma
     Dosage: 180 MILLIGRAM/SQ. METER (CONTINUOUS IV INFUSION OF FLUOROURACIL 180 MG/M2 OVER 24 HOURS FROM DAYS 1-
     Route: 042
  2. OXALIPLATIN [Suspect]
     Active Substance: OXALIPLATIN
     Indication: Oesophageal adenocarcinoma
     Dosage: 85 MILLIGRAM/SQ. METER (85 MG/M2 OVER 120 MINUTES ON DAYS 1,15 AND 29.)
     Route: 042
  3. CETUXIMAB [Suspect]
     Active Substance: CETUXIMAB
     Indication: Oesophageal adenocarcinoma
     Route: 042
  4. CETUXIMAB [Suspect]
     Active Substance: CETUXIMAB
     Route: 042

REACTIONS (1)
  - Acute respiratory distress syndrome [Fatal]
